FAERS Safety Report 21316184 (Version 2)
Quarter: 2022Q3

REPORT INFORMATION
  Report Type: Spontaneous
  Country: US (occurrence: US)
  Receive Date: 20220910
  Receipt Date: 20220923
  Transmission Date: 20221027
  Serious: No
  Sender: FDA-Public Use
  Company Number: US-009507513-2208USA004721

PATIENT
  Sex: Male

DRUGS (3)
  1. KEYTRUDA [Interacting]
     Active Substance: PEMBROLIZUMAB
     Indication: Malignant melanoma
     Dosage: UNK
  2. DUPIXENT [Interacting]
     Active Substance: DUPILUMAB
     Indication: Dermatitis atopic
     Dosage: 900 MILLIGRAM, ONCE
     Route: 058
     Dates: start: 20220421, end: 20220421
  3. DUPIXENT [Interacting]
     Active Substance: DUPILUMAB
     Dosage: 300 MILLIGRAM, QOW
     Route: 058
     Dates: start: 20220505

REACTIONS (10)
  - Drug interaction [Recovered/Resolved]
  - Nausea [Not Recovered/Not Resolved]
  - Headache [Recovered/Resolved]
  - Chills [Recovered/Resolved]
  - Pyrexia [Not Recovered/Not Resolved]
  - Oropharyngeal pain [Recovered/Resolved]
  - Musculoskeletal stiffness [Recovered/Resolved]
  - Illness [Recovered/Resolved]
  - Suspected COVID-19 [Unknown]
  - Rash [Unknown]

NARRATIVE: CASE EVENT DATE: 20220101
